FAERS Safety Report 6599889-X (Version None)
Quarter: 2010Q1

REPORT INFORMATION
  Report Type: 
  Country: None (occurrence: None)
  Receive Date: 20100224
  Receipt Date: 20100223
  Transmission Date: 20100710
  Serious: Yes (Life-Threatening)
  Sender: FDA-Public Use
  Company Number: US-EISAI INC.-E2080-00239-CLI-US

PATIENT
  Sex: Female
  Weight: 73 kg

DRUGS (9)
  1. E2080 [Suspect]
     Indication: PARTIAL SEIZURES
     Route: 048
     Dates: start: 20080131
  2. ZONISAMIDE [Concomitant]
     Route: 048
     Dates: start: 20050819
  3. LAMOTRIGINE [Concomitant]
     Route: 048
     Dates: start: 20000110
  4. LEVETIRACETAM [Concomitant]
     Route: 048
     Dates: start: 20070716
  5. LISINOPRIL [Concomitant]
     Indication: HYPERTENSION
     Route: 048
     Dates: start: 20081201
  6. PANTOPRAZOLE [Concomitant]
     Route: 048
     Dates: start: 20081201
  7. LORAZEPAM [Concomitant]
     Dosage: 1 MG PRN
     Route: 048
     Dates: start: 20070122
  8. TIOTROPIUM [Concomitant]
     Indication: ASTHMA
     Dosage: 1 INHALATION PRN
     Dates: start: 20070103
  9. ASPIRIN [Concomitant]
     Dosage: 325 MG PRN

REACTIONS (1)
  - MYOCARDIAL INFARCTION [None]
